FAERS Safety Report 5661845-3 (Version None)
Quarter: 2008Q1

REPORT INFORMATION
  Report Type: 
  Country: None (occurrence: None)
  Receive Date: 20080312
  Receipt Date: 20080305
  Transmission Date: 20080703
  Serious: Yes (Hospitalization)
  Sender: FDA-Public Use
  Company Number: JP-ASTRAZENECA-2008AP01266

PATIENT
  Age: 60 Year
  Sex: Male

DRUGS (5)
  1. OMEPRAL TABLETS [Suspect]
     Indication: GASTRIC ULCER HELICOBACTER
     Route: 048
     Dates: start: 20080215
  2. SAWACILLIN [Suspect]
     Indication: GASTRIC ULCER HELICOBACTER
     Route: 048
     Dates: start: 20080215
  3. FLAGYL [Suspect]
     Indication: GASTRIC ULCER HELICOBACTER
     Route: 048
     Dates: start: 20080215
  4. ADALAT [Concomitant]
     Route: 048
     Dates: start: 20050201
  5. LIPITOR [Concomitant]
     Route: 048
     Dates: start: 20060601

REACTIONS (1)
  - SUDDEN HEARING LOSS [None]
